FAERS Safety Report 6233414-8 (Version None)
Quarter: 2009Q2

REPORT INFORMATION
  Report Type: 
  Country: None (occurrence: None)
  Receive Date: 20090616
  Receipt Date: 20090616
  Transmission Date: 20091009
  Serious: Yes (Other)
  Sender: FDA-Public Use
  Company Number: None

PATIENT
  Age: 31 Year
  Sex: Female
  Weight: 102.0593 kg

DRUGS (4)
  1. CYMBALTA [Suspect]
     Indication: ANXIETY
     Dosage: 1 TABLET ONCE A DAY PO WEEKS
     Route: 048
     Dates: start: 20080101, end: 20081201
  2. CYMBALTA [Suspect]
     Indication: DEPRESSION
     Dosage: 1 TABLET ONCE A DAY PO WEEKS
     Route: 048
     Dates: start: 20080101, end: 20081201
  3. CYMBALTA [Suspect]
     Indication: ANXIETY
     Dosage: 1 TABLET ONCE A DAY PO WEEKS
     Route: 048
     Dates: start: 20090520, end: 20090601
  4. CYMBALTA [Suspect]
     Indication: DEPRESSION
     Dosage: 1 TABLET ONCE A DAY PO WEEKS
     Route: 048
     Dates: start: 20090520, end: 20090601

REACTIONS (4)
  - ABDOMINAL DISCOMFORT [None]
  - ACTIVITIES OF DAILY LIVING IMPAIRED [None]
  - IMPAIRED WORK ABILITY [None]
  - PAIN [None]
